FAERS Safety Report 7292640-X (Version None)
Quarter: 2011Q1

REPORT INFORMATION
  Report Type: 
  Country: None (occurrence: None)
  Receive Date: 20110203
  Receipt Date: 20110118
  Transmission Date: 20110831
  Serious: Yes (Death)
  Sender: FDA-Public Use
  Company Number: B0694962A

PATIENT
  Age: 38 Year
  Sex: Male

DRUGS (15)
  1. ACETAMINOPHEN [Suspect]
     Dosage: ORAL
     Route: 048
  2. BENZODIAZEPINES (FORMULATION UNKNOWN) (BENZODIAZEPINES) [Suspect]
     Dosage: ORAL
     Route: 048
  3. CYCLOBENZAPRINE HCL [Suspect]
     Dosage: ORAL
     Route: 048
  4. PHENYTOIN [Suspect]
     Dosage: ORAL
     Route: 048
  5. CITALOPRAM HYDROBROMIDE [Suspect]
     Dosage: ORAL
     Route: 048
  6. PROCHLORPERAZINE [Suspect]
     Dosage: ORAL
     Route: 048
  7. QUETIAPINE [Suspect]
     Dosage: ORAL
     Route: 048
  8. VALPROIC ACID [Suspect]
     Dosage: ORAL
     Route: 048
  9. ZOLPIDEM TARTRATE [Suspect]
     Dosage: ORAL
     Route: 048
  10. PAROXETINE HYDROCHLORIDE [Suspect]
     Dosage: ORAL
     Route: 048
  11. DICHLORALP+ISOMETH+PARACE (FORMULATION UNKNOWN) (ACETAM+DICHLORALP+ISO [Suspect]
     Dosage: ORAL
     Route: 048
  12. METHYLERGOMETRINE (FORMULATION UNKNOWN) (METHYLERGOMETRINE) [Suspect]
     Dosage: ORAL
     Route: 048
  13. ESZOPICLONE [Suspect]
     Dosage: ORAL
     Route: 048
  14. VERAPAMIL [Suspect]
     Dosage: ORAL
     Route: 048
  15. BETA-BLOCKER (FORMULATION UNKNOWN) (BETA-BLOCKER) [Suspect]
     Dosage: ORAL
     Route: 048

REACTIONS (1)
  - COMPLETED SUICIDE [None]
